FAERS Safety Report 10246760 (Version 1)
Quarter: 2014Q2

REPORT INFORMATION
  Report Type: Spontaneous
  Country: US (occurrence: None)
  Receive Date: 20140617
  Receipt Date: 20140617
  Transmission Date: 20141212
  Serious: No
  Sender: FDA-Public Use
  Company Number: None

PATIENT
  Age: 69 Year
  Sex: Male
  Weight: 95.26 kg

DRUGS (2)
  1. LISINOPRIL 40 MG LUPIN PHARMACE [Suspect]
     Indication: BLOOD PRESSURE
     Dosage: 20 MG PER DAY ONCE DAILY TAKEN BY MOUTH
     Route: 048
     Dates: start: 200606
  2. LISINOPRIL 40 MG LUPIN PHARMACE [Suspect]
     Dosage: 20 MG PER DAY ONCE DAILY TAKEN BY MOUTH
     Route: 048
     Dates: start: 200606

REACTIONS (1)
  - Product contamination physical [None]
